FAERS Safety Report 5171113-4 (Version None)
Quarter: 2006Q4

REPORT INFORMATION
  Report Type: 
  Country: None (occurrence: None)
  Receive Date: 20061213
  Receipt Date: 20061201
  Transmission Date: 20070319
  Serious: Yes (Hospitalization, Other)
  Sender: FDA-Public Use
  Company Number: EMADSS2003003287

PATIENT
  Sex: Male

DRUGS (3)
  1. REMICADE [Suspect]
     Indication: ANKYLOSING SPONDYLITIS
     Route: 041
     Dates: start: 19991222
  2. LOGASTRIC [Concomitant]
     Route: 048
  3. HYTRIN [Concomitant]
     Route: 048

REACTIONS (2)
  - BLADDER TRANSITIONAL CELL CARCINOMA [None]
  - URINARY TRACT INFECTION [None]
